FAERS Safety Report 20995802 (Version 1)
Quarter: 2022Q2

REPORT INFORMATION
  Report Type: Spontaneous
  Country: US (occurrence: US)
  Receive Date: 20220623
  Receipt Date: 20220623
  Transmission Date: 20220721
  Serious: No
  Sender: FDA-Public Use
  Company Number: US-JNJFOC-20220626015

PATIENT
  Sex: Female

DRUGS (2)
  1. OPSUMIT [Suspect]
     Active Substance: MACITENTAN
     Indication: Product used for unknown indication
     Dosage: 10 MG TAKE 1 TABLET BY MOUTH ONCE A DAY
     Route: 048
     Dates: start: 20210128
  2. ERYTHROMYCIN [Suspect]
     Active Substance: ERYTHROMYCIN
     Indication: Sinusitis
     Route: 065

REACTIONS (2)
  - Sinusitis [Unknown]
  - Abdominal discomfort [Unknown]
